FAERS Safety Report 4994290-4 (Version None)
Quarter: 2006Q2

REPORT INFORMATION
  Report Type: 
  Country: None (occurrence: None)
  Receive Date: 20060505
  Receipt Date: 20060425
  Transmission Date: 20061013
  Serious: Yes (Hospitalization)
  Sender: FDA-Public Use
  Company Number: JP-NOVOPROD-252874

PATIENT
  Age: 51 Year
  Sex: Male

DRUGS (5)
  1. INNOLET 30R CHU [Suspect]
     Indication: INSULIN-REQUIRING TYPE II DIABETES MELLITUS
     Dosage: 18-30 IU QD
     Route: 058
     Dates: start: 20050719
  2. ACTOS                              /01460202/ [Concomitant]
     Dosage: 45 MG, QD
     Route: 048
     Dates: start: 20040614
  3. LIPITOR [Concomitant]
     Dosage: 10 MG, QD
     Route: 048
     Dates: start: 20040806
  4. GLIBENCLAMIDE [Concomitant]
     Dosage: 5 - 7.5 MG QD
     Route: 048
     Dates: start: 20050421
  5. KINEDAK [Concomitant]
     Dosage: 2-3 TAB QD
     Route: 048
     Dates: start: 20050512

REACTIONS (1)
  - HEPATIC FUNCTION ABNORMAL [None]
